FAERS Safety Report 6579455-2 (Version None)
Quarter: 2010Q1

REPORT INFORMATION
  Report Type: 
  Country: None (occurrence: None)
  Receive Date: 20100212
  Receipt Date: 20100209
  Transmission Date: 20100710
  Serious: Yes (Death)
  Sender: FDA-Public Use
  Company Number: US-BRISTOL-MYERS SQUIBB COMPANY-14970677

PATIENT

DRUGS (1)
  1. SPRYCEL [Suspect]

REACTIONS (1)
  - DEATH [None]
